FAERS Safety Report 5622971-8 (Version None)
Quarter: 2008Q1

REPORT INFORMATION
  Report Type: 
  Country: None (occurrence: None)
  Receive Date: 20080212
  Receipt Date: 20080205
  Transmission Date: 20080703
  Serious: Yes (Hospitalization)
  Sender: FDA-Public Use
  Company Number: JP-AVENTIS-200810361JP

PATIENT
  Age: 96 Year
  Sex: Female

DRUGS (2)
  1. AMARYL [Suspect]
     Indication: DIABETES MELLITUS
     Route: 048
  2. CLARITHROMYCIN [Suspect]

REACTIONS (2)
  - DRUG INTERACTION [None]
  - HYPOGLYCAEMIC COMA [None]
